FAERS Safety Report 8895701 (Version 1)
Quarter: 2012Q4

REPORT INFORMATION
  Report Type: 
  Country: US (occurrence: US)
  Receive Date: 20121108
  Receipt Date: 20121108
  Transmission Date: 20130627
  Serious: Yes (Hospitalization)
  Sender: FDA-Public Use
  Company Number: US-BAXTER-2012BAX016978

PATIENT
  Sex: Male

DRUGS (1)
  1. DIANEAL LOW CALCIUM [Suspect]
     Indication: PERITONEAL DIALYSIS
     Route: 033

REACTIONS (5)
  - Cholecystitis infective [Recovering/Resolving]
  - Cholelithiasis [Recovering/Resolving]
  - Pyrexia [Recovering/Resolving]
  - White blood cell count increased [Unknown]
  - Malaise [Unknown]
